FAERS Safety Report 7545166-X (Version None)
Quarter: 2011Q2

REPORT INFORMATION
  Report Type: 
  Country: None (occurrence: None)
  Receive Date: 20110614
  Receipt Date: 20110531
  Transmission Date: 20111010
  Serious: Yes (Hospitalization)
  Sender: FDA-Public Use
  Company Number: CA-ELI_LILLY_AND_COMPANY-CA201105000508

PATIENT
  Sex: Female

DRUGS (18)
  1. CALCITONIN [Concomitant]
     Route: 045
  2. SYNTHROID [Concomitant]
  3. PANTOLOC                           /01263202/ [Concomitant]
  4. NORVASC [Concomitant]
  5. FERROUS SULFATE TAB [Concomitant]
  6. LANTUS [Concomitant]
  7. SENOKOT [Concomitant]
  8. VITAMIN D [Concomitant]
  9. TYLENOL                                 /SCH/ [Concomitant]
     Dosage: UNK, PRN
  10. DILAUDID [Concomitant]
  11. LYRICA [Concomitant]
  12. CALCIUM CARBONATE [Concomitant]
  13. ATACAND [Concomitant]
  14. COLACE [Concomitant]
  15. NOVO RAPID [Concomitant]
  16. TRAZODONE HCL [Concomitant]
  17. FORTEO [Suspect]
     Indication: OSTEOPOROSIS
     Dosage: 20 UG, DAILY (1/D)
     Route: 058
     Dates: start: 20110207
  18. CRESTOR [Concomitant]

REACTIONS (2)
  - BACK PAIN [None]
  - PATHOLOGICAL FRACTURE [None]
